FAERS Safety Report 22313816 (Version 1)
Quarter: 2023Q2

REPORT INFORMATION
  Report Type: Spontaneous
  Country: US (occurrence: US)
  Receive Date: 20230512
  Receipt Date: 20230512
  Transmission Date: 20230722
  Serious: Yes (Hospitalization, Other)
  Sender: FDA-Public Use
  Company Number: US-PFIZER INC-PV202300083175

PATIENT
  Age: 35 Year
  Sex: Female
  Weight: 67.6 kg

DRUGS (3)
  1. NALOXONE HCL [Suspect]
     Active Substance: NALOXONE HYDROCHLORIDE
     Dosage: 1 MG (A TOTAL OF 3 ADMINISTRATIONS)
     Route: 030
  2. NALOXONE HCL [Suspect]
     Active Substance: NALOXONE HYDROCHLORIDE
     Dosage: 0.4 MG
     Route: 042
  3. ACETAMINOPHEN\HYDROCODONE [Suspect]
     Active Substance: ACETAMINOPHEN\HYDROCODONE
     Dosage: 10-325 MG FOUR TIMES IN THE 24 HR

REACTIONS (1)
  - Hypoglycaemia [Unknown]
